FAERS Safety Report 9738804 (Version 1)
Quarter: 2013Q4

REPORT INFORMATION
  Report Type: Spontaneous
  Country: US (occurrence: US)
  Receive Date: 20131209
  Receipt Date: 20131209
  Transmission Date: 20140711
  Serious: No
  Sender: FDA-Public Use
  Company Number: US-PFIZER INC-2013346397

PATIENT
  Sex: Female

DRUGS (1)
  1. NEOSPORIN [Suspect]
     Dosage: UNK
     Route: 061

REACTIONS (2)
  - Erythema [Unknown]
  - Rash [Unknown]
